FAERS Safety Report 18081428 (Version 3)
Quarter: 2020Q3

REPORT INFORMATION
  Report Type: Report from Study
  Country: CA (occurrence: CA)
  Receive Date: 20200728
  Receipt Date: 20200824
  Transmission Date: 20201103
  Serious: No
  Sender: FDA-Public Use
  Company Number: NVSC2020CA208463

PATIENT
  Sex: Male

DRUGS (5)
  1. BLINDED AIN457 [Suspect]
     Active Substance: SECUKINUMAB
     Indication: PSORIASIS
     Dosage: CODE NOT BROKEN
     Route: 058
     Dates: start: 20190603, end: 20200310
  2. BLINDED NO TREATMENT RECEIVED [Suspect]
     Active Substance: INVESTIGATIONAL PRODUCT
     Indication: PSORIASIS
     Dosage: CODE NOT BROKEN
     Route: 058
     Dates: start: 20190603, end: 20200310
  3. DOVOBET [Concomitant]
     Active Substance: BETAMETHASONE\CALCIPOTRIENE
     Indication: PRODUCT USED FOR UNKNOWN INDICATION
     Dosage: UNK
     Route: 065
  4. BLINDED AIN457 [Suspect]
     Active Substance: SECUKINUMAB
     Indication: PSORIASIS
     Dosage: CODE NOT BROKEN
     Route: 058
     Dates: start: 20190603, end: 20200310
  5. PLACEBO [Suspect]
     Active Substance: UNSPECIFIED INGREDIENT
     Indication: PSORIASIS
     Dosage: CODE NOT BROKEN
     Route: 058
     Dates: start: 20190603, end: 20200310

REACTIONS (1)
  - Respiratory tract infection [Unknown]
